FAERS Safety Report 18176021 (Version 2)
Quarter: 2022Q1

REPORT INFORMATION
  Report Type: Spontaneous
  Country: CA (occurrence: CA)
  Receive Date: 20200820
  Receipt Date: 20220103
  Transmission Date: 20220423
  Serious: Yes (Hospitalization)
  Sender: FDA-Public Use
  Company Number: None

PATIENT
  Age: 75 Year
  Sex: Male

DRUGS (8)
  1. QUETIAPINE FUMARATE [Suspect]
     Active Substance: QUETIAPINE FUMARATE
     Indication: Anxiety
     Route: 048
  2. BISOPROLOL [Concomitant]
     Active Substance: BISOPROLOL
     Route: 065
  3. ELIQUIS [Concomitant]
     Active Substance: APIXABAN
     Dosage: FILM-COATED
     Route: 065
  4. HYDROMORPHONE [Concomitant]
     Active Substance: HYDROMORPHONE
     Dosage: NOT SPECIFIED
     Route: 065
  5. LOXAPINE [Concomitant]
     Active Substance: LOXAPINE
     Dosage: NOT SPECIFIED
     Route: 065
  6. MELATONIN [Concomitant]
     Active Substance: MELATONIN
     Dosage: NOT SPECIFIED
     Route: 065
  7. RAMIPRIL [Concomitant]
     Active Substance: RAMIPRIL
     Route: 065
  8. TYLENOL [Concomitant]
     Active Substance: ACETAMINOPHEN
     Dosage: ELIXIR
     Route: 065

REACTIONS (9)
  - Blood creatine phosphokinase increased [Unknown]
  - Blood pressure fluctuation [Unknown]
  - Camptocormia [Unknown]
  - Cogwheel rigidity [Unknown]
  - Hyperhidrosis [Unknown]
  - Neuroleptic malignant syndrome [Unknown]
  - Parkinsonian rest tremor [Unknown]
  - Restlessness [Unknown]
  - Serotonin syndrome [Unknown]
